FAERS Safety Report 6137895-X (Version None)
Quarter: 2009Q1

REPORT INFORMATION
  Report Type: 
  Country: None (occurrence: None)
  Receive Date: 20090331
  Receipt Date: 20090112
  Transmission Date: 20090719
  Serious: Yes (Hospitalization)
  Sender: FDA-Public Use
  Company Number: DE-PFIZER INC-2009180930

PATIENT

DRUGS (2)
  1. HYDROXYZINE HCL [Suspect]
     Dosage: 625 MG, ONCE
     Route: 048
     Dates: start: 20090112, end: 20090112
  2. AMITRIPTYLINE [Suspect]
     Dosage: 750 MG, ONCE
     Dates: start: 20090112, end: 20090112

REACTIONS (4)
  - OVERDOSE [None]
  - SOMNOLENCE [None]
  - SUICIDE ATTEMPT [None]
  - VOMITING [None]
